FAERS Safety Report 17034721 (Version 1)
Quarter: 2019Q4

REPORT INFORMATION
  Report Type: Spontaneous
  Country: FR (occurrence: FR)
  Receive Date: 20191115
  Receipt Date: 20191115
  Transmission Date: 20200122
  Serious: Yes (Hospitalization)
  Sender: FDA-Public Use
  Company Number: FR-TEVA-2019-FR-1136792

PATIENT
  Age: 61 Year
  Sex: Male
  Weight: 69 kg

DRUGS (3)
  1. PREDNISONE. [Suspect]
     Active Substance: PREDNISONE
     Indication: HAEMOLYTIC ANAEMIA
     Dosage: 5MG/ DAY
     Route: 048
     Dates: start: 2017
  2. IMETH [Suspect]
     Active Substance: METHOTREXATE SODIUM
     Indication: HAEMOLYTIC ANAEMIA
     Dosage: 5 MG/ WEEK
     Route: 048
     Dates: start: 2017
  3. RIXATHON [Suspect]
     Active Substance: RITUXIMAB
     Indication: HAEMOLYTIC ANAEMIA
     Dosage: 1000MG
     Route: 041
     Dates: start: 20181203, end: 20190614

REACTIONS (2)
  - Influenza [Recovered/Resolved]
  - Pneumonia [Recovered/Resolved]

NARRATIVE: CASE EVENT DATE: 201902
